FAERS Safety Report 8283034-9 (Version None)
Quarter: 2012Q2

REPORT INFORMATION
  Report Type: 
  Country: None (occurrence: None)
  Receive Date: 20120413
  Receipt Date: 20120329
  Transmission Date: 20120825
  Serious: Yes (Life-Threatening, Other)
  Sender: FDA-Public Use
  Company Number: VE-ROCHE-1054234

PATIENT
  Sex: Female
  Weight: 98 kg

DRUGS (1)
  1. TRASTUZUMAB [Suspect]
     Indication: BREAST CANCER
     Route: 041
     Dates: start: 20110614, end: 20120110

REACTIONS (4)
  - BREAST INDURATION [None]
  - ERYTHEMA [None]
  - PAIN [None]
  - DISEASE PROGRESSION [None]
